FAERS Safety Report 6496181-9 (Version None)
Quarter: 2009Q4

REPORT INFORMATION
  Report Type: 
  Country: None (occurrence: None)
  Receive Date: 20091214
  Receipt Date: 20091014
  Transmission Date: 20100525
  Serious: No
  Sender: FDA-Public Use
  Company Number: US-BRISTOL-MYERS SQUIBB COMPANY-14817381

PATIENT
  Age: 43 Year
  Sex: Female
  Weight: 141 kg

DRUGS (3)
  1. ABILIFY [Suspect]
     Indication: BIPOLAR DISORDER
     Dates: start: 20081001
  2. CLONAZEPAM [Concomitant]
  3. LAMICTAL [Concomitant]

REACTIONS (3)
  - DEHYDRATION [None]
  - DRY MOUTH [None]
  - TOOTH FRACTURE [None]
